FAERS Safety Report 9259601 (Version 3)
Quarter: 2014Q2

REPORT INFORMATION
  Report Type: Spontaneous
  Country: US (occurrence: US)
  Receive Date: 20130429
  Receipt Date: 20140401
  Transmission Date: 20141212
  Serious: No
  Sender: FDA-Public Use
  Company Number: US-ASTRAZENECA-2013SE27576

PATIENT
  Age: 52 Year
  Sex: Female
  Weight: 51.3 kg

DRUGS (14)
  1. NEXIUM [Suspect]
     Indication: GASTROOESOPHAGEAL REFLUX DISEASE
     Route: 048
     Dates: start: 2001, end: 2009
  2. NEXIUM [Suspect]
     Indication: GASTROOESOPHAGEAL REFLUX DISEASE
     Route: 048
     Dates: start: 20050222
  3. ZANTAC [Concomitant]
     Dates: start: 2009
  4. MYLANTA [Concomitant]
     Dosage: AS NEEDED
  5. NAPROSYN [Concomitant]
     Indication: ARTHRITIS
     Dates: start: 20041106
  6. HYDROCORTISONE [Concomitant]
     Indication: ARTHRITIS
  7. TRAMADOL [Concomitant]
     Indication: PAIN
  8. FOSOMAX [Concomitant]
     Indication: OSTEOPOROSIS
  9. TYLENOL [Concomitant]
     Indication: PAIN
  10. CALCIUM [Concomitant]
     Indication: OSTEOPOROSIS
  11. MAGNESIUM [Concomitant]
     Indication: OSTEOPOROSIS
  12. VITAMIN D [Concomitant]
     Indication: OSTEOPOROSIS
  13. PREDNISONE [Concomitant]
     Dates: start: 20080522
  14. HYDROCODONE-APAP [Concomitant]
     Dosage: 7.5-325
     Dates: start: 20081030

REACTIONS (7)
  - Osteoporosis [Unknown]
  - Bone disorder [Unknown]
  - Multiple fractures [Unknown]
  - Osteopenia [Unknown]
  - Gastric dilatation [Unknown]
  - Calcium deficiency [Unknown]
  - Vitamin D deficiency [Unknown]
